FAERS Safety Report 10237889 (Version 1)
Quarter: 2014Q2

REPORT INFORMATION
  Report Type: Spontaneous
  Country: US (occurrence: US)
  Receive Date: 20140616
  Receipt Date: 20140616
  Transmission Date: 20141212
  Serious: Yes (Other)
  Sender: FDA-Public Use
  Company Number: US-SHIRE-US201402774

PATIENT
  Age: 50 Year
  Sex: Male

DRUGS (5)
  1. 422 (ANAGRELIDE) [Suspect]
     Indication: THROMBOCYTOSIS
     Dosage: 1 G, 3X/DAY:TID
     Route: 048
     Dates: start: 2002
  2. 422 (ANAGRELIDE) [Suspect]
     Dosage: 500 MG, 2X/DAY:BID
     Route: 048
     Dates: start: 2002
  3. 422 (ANAGRELIDE) [Suspect]
     Dosage: UNK, UNKNOWN ( UNKNOWN MG/GRADUALLY INCREASED)
     Route: 048
     Dates: start: 2002
  4. HYDROXYUREA [Suspect]
     Indication: PRODUCT USED FOR UNKNOWN INDICATION
     Dosage: 1500 MG, 2X/DAY:BID
     Route: 048
     Dates: start: 2008
  5. HYDROXYUREA [Suspect]
     Dosage: 500 MG, 1X/DAY:QD
     Route: 048
     Dates: end: 2008

REACTIONS (4)
  - Hemiparesis [Unknown]
  - Cerebral infarction [Unknown]
  - Pancytopenia [Unknown]
  - Prescribed overdose [Unknown]
